FAERS Safety Report 16122287 (Version 1)
Quarter: 2019Q1

REPORT INFORMATION
  Report Type: Spontaneous
  Country: ES (occurrence: ES)
  Receive Date: 20190327
  Receipt Date: 20190327
  Transmission Date: 20190418
  Serious: Yes (Other)
  Sender: FDA-Public Use
  Company Number: ES-AUROBINDO-AUR-APL-2019-015082

PATIENT

DRUGS (5)
  1. LEVOFLOXACIN AUROVITAS 500 MG FILM COATED TABLET EFG [Suspect]
     Active Substance: LEVOFLOXACIN
     Indication: HELICOBACTER INFECTION
     Dosage: 500 MILLIGRAM, TWO TIMES A DAY, 1 CADA 12 DURANTE 14 DIAS
     Route: 048
     Dates: start: 20190225, end: 20190226
  2. ENALAPRIL + HIDROCLOROTIAZIDA [Concomitant]
     Active Substance: ENALAPRIL MALEATE\HYDROCHLOROTHIAZIDE
     Indication: HYPERTENSION
     Dosage: 1 CADA 24 HORAS
     Route: 048
  3. PANTOPRAZOLE [Concomitant]
     Active Substance: PANTOPRAZOLE
     Indication: HELICOBACTER INFECTION
     Dosage: 1 CADA 12 HORAS
     Route: 048
     Dates: start: 20190225
  4. AMOXICILLIN TRIHYDRATE [Suspect]
     Active Substance: AMOXICILLIN
     Indication: HELICOBACTER INFECTION
     Dosage: 1 CADA 12 HORAS
     Route: 048
     Dates: start: 20190225, end: 20190227
  5. ORFIDAL [Concomitant]
     Active Substance: LORAZEPAM
     Indication: PRODUCT USED FOR UNKNOWN INDICATION
     Dosage: 1 CADA 24 HORAS
     Route: 048

REACTIONS (3)
  - Purulent discharge [None]
  - Blister [Not Recovered/Not Resolved]
  - Oral mucosal blistering [None]

NARRATIVE: CASE EVENT DATE: 20190225
